FAERS Safety Report 7737243-5 (Version None)
Quarter: 2011Q3

REPORT INFORMATION
  Report Type: 
  Country: None (occurrence: None)
  Receive Date: 20110908
  Receipt Date: 20110824
  Transmission Date: 20111222
  Serious: Yes (Hospitalization, Other)
  Sender: FDA-Public Use
  Company Number: TR-JNJFOC-20110901012

PATIENT
  Age: 10 Year
  Sex: Male

DRUGS (9)
  1. TOPIRAMATE [Suspect]
     Dosage: RANGE 15-20 MG/KG/DAY
     Route: 050
  2. CLOBAZAM [Suspect]
     Indication: CONVULSION
     Route: 042
  3. VALPROIC ACID [Suspect]
     Indication: STATUS EPILEPTICUS
     Route: 042
  4. PHENYTOIN [Suspect]
     Indication: STATUS EPILEPTICUS
     Route: 042
  5. CARBAMAZEPINE [Suspect]
     Indication: CONVULSION
     Route: 042
  6. TOPIRAMATE [Suspect]
     Dosage: AS MAINTENANCE DOSE
     Route: 050
  7. PHENOBARBITAL TAB [Suspect]
     Indication: STATUS EPILEPTICUS
     Route: 042
  8. PROPOFOL [Suspect]
     Indication: STATUS EPILEPTICUS
     Route: 042
  9. TOPIRAMATE [Suspect]
     Indication: STATUS EPILEPTICUS
     Dosage: LOADING DOSE, NASOGASTRIC ROUTE OF DRUG ADMINISTRATION
     Route: 050

REACTIONS (2)
  - DRUG EFFECT DECREASED [None]
  - INCORRECT ROUTE OF DRUG ADMINISTRATION [None]
